FAERS Safety Report 7242040-3 (Version None)
Quarter: 2011Q1

REPORT INFORMATION
  Report Type: 
  Country: None (occurrence: None)
  Receive Date: 20110114
  Receipt Date: 20110107
  Transmission Date: 20110831
  Serious: Yes (Hospitalization, Disabling)
  Sender: FDA-Public Use
  Company Number: 2010PV000104

PATIENT
  Age: 84 Year
  Sex: Female

DRUGS (5)
  1. METHOTREXATE [Suspect]
     Indication: ACUTE LYMPHOCYTIC LEUKAEMIA
     Dosage: 15 MG; QD; INTH
     Route: 037
     Dates: start: 20100521, end: 20100901
  2. CYTARABINE [Suspect]
     Indication: ACUTE LYMPHOCYTIC LEUKAEMIA
     Dosage: 40 MG; QD; IV
     Route: 042
     Dates: start: 20100521, end: 20100901
  3. DEPOCYT [Suspect]
     Indication: ACUTE LYMPHOCYTIC LEUKAEMIA
     Dosage: 40 MG; QOW; INTH
     Route: 037
     Dates: start: 20100530, end: 20100901
  4. VINCRISTINE [Suspect]
     Indication: ACUTE LYMPHOCYTIC LEUKAEMIA
     Dosage: 2 MG; QD; IV
     Route: 042
     Dates: start: 20100517, end: 20100901
  5. GLEEVEC [Suspect]
     Indication: ACUTE LYMPHOCYTIC LEUKAEMIA
     Dosage: 600 MG; QD
     Dates: start: 20100517

REACTIONS (20)
  - URINARY INCONTINENCE [None]
  - C-REACTIVE PROTEIN INCREASED [None]
  - DECREASED VIBRATORY SENSE [None]
  - PERIPHERAL SENSORY NEUROPATHY [None]
  - PATHOGEN RESISTANCE [None]
  - AREFLEXIA [None]
  - NEUTROPHIL COUNT INCREASED [None]
  - CHONDROCALCINOSIS [None]
  - PROTEUS INFECTION [None]
  - URINARY TRACT INFECTION BACTERIAL [None]
  - RADICULOPATHY [None]
  - HAEMOGLOBIN DECREASED [None]
  - CSF PROTEIN INCREASED [None]
  - HYPOAESTHESIA [None]
  - FAECAL INCONTINENCE [None]
  - LYMPHOCYTE COUNT DECREASED [None]
  - CERVICAL SPINAL STENOSIS [None]
  - MEAN CELL VOLUME INCREASED [None]
  - SENSORIMOTOR DISORDER [None]
  - ATAXIA [None]
